FAERS Safety Report 9981490 (Version 1)
Quarter: 2014Q1

REPORT INFORMATION
  Report Type: Spontaneous
  Country: US (occurrence: None)
  Receive Date: 20140306
  Receipt Date: 20140306
  Transmission Date: 20141002
  Serious: Yes (Life-Threatening, Hospitalization)
  Sender: FDA-Public Use
  Company Number: None

PATIENT
  Age: 57 Year
  Sex: Male
  Weight: 101.15 kg

DRUGS (4)
  1. ATOVAQUONE PROGUANIL [Suspect]
     Indication: MALARIA PROPHYLAXIS
     Route: 048
     Dates: start: 20140106, end: 20140123
  2. LIPITOR [Concomitant]
  3. BABY ASPIRIN [Concomitant]
  4. SYNTHROID [Concomitant]

REACTIONS (4)
  - Hepatitis [None]
  - Liver injury [None]
  - Autoimmune disorder [None]
  - Weight decreased [None]
